FAERS Safety Report 7078586-0 (Version None)
Quarter: 2010Q4

REPORT INFORMATION
  Report Type: 
  Country: None (occurrence: None)
  Receive Date: 20101102
  Receipt Date: 20101019
  Transmission Date: 20110411
  Serious: Yes (Hospitalization)
  Sender: FDA-Public Use
  Company Number: SG-RANBAXY-2010RR-38894

PATIENT
  Age: 53 Year
  Sex: Male

DRUGS (3)
  1. RISPERIDONE [Suspect]
     Dosage: 1 MG, QD
     Dates: start: 20090521
  2. HALOPERIDOL [Concomitant]
     Dosage: 5 MG, QD
  3. LORAZEPAM [Concomitant]
     Dosage: 0.5 MG, BID

REACTIONS (3)
  - NEUROLEPTIC MALIGNANT SYNDROME [None]
  - PNEUMONIA ASPIRATION [None]
  - RHABDOMYOLYSIS [None]
